FAERS Safety Report 10964734 (Version 2)
Quarter: 2015Q2

REPORT INFORMATION
  Report Type: Spontaneous
  Country: GB (occurrence: GB)
  Receive Date: 20150330
  Receipt Date: 20150610
  Transmission Date: 20150821
  Serious: Yes (Other)
  Sender: FDA-Public Use
  Company Number: GB-ROCHE-1556938

PATIENT
  Age: 76 Year
  Sex: Female

DRUGS (7)
  1. HUMALOG [Concomitant]
     Active Substance: INSULIN LISPRO
  2. LUCENTIS [Suspect]
     Active Substance: RANIBIZUMAB
     Route: 050
     Dates: start: 20141231, end: 20141231
  3. WARFARIN [Concomitant]
     Active Substance: WARFARIN
  4. LUCENTIS [Suspect]
     Active Substance: RANIBIZUMAB
     Route: 050
     Dates: start: 201309
  5. LUCENTIS [Suspect]
     Active Substance: RANIBIZUMAB
     Route: 050
     Dates: start: 201312
  6. LUCENTIS [Suspect]
     Active Substance: RANIBIZUMAB
     Indication: RETINAL VEIN OCCLUSION
     Route: 050
     Dates: start: 201307
  7. LUCENTIS [Suspect]
     Active Substance: RANIBIZUMAB
     Indication: MACULAR OEDEMA
     Route: 050
     Dates: start: 201308

REACTIONS (6)
  - Arthralgia [Recovering/Resolving]
  - Bursitis [Unknown]
  - Abasia [Unknown]
  - Ligament rupture [Unknown]
  - Musculoskeletal discomfort [Unknown]
  - Musculoskeletal pain [Recovering/Resolving]

NARRATIVE: CASE EVENT DATE: 20150122
